FAERS Safety Report 25107139 (Version 1)
Quarter: 2025Q1

REPORT INFORMATION
  Report Type: Spontaneous
  Country: US (occurrence: US)
  Receive Date: 20250321
  Receipt Date: 20250321
  Transmission Date: 20250409
  Serious: Yes (Other)
  Sender: SANOFI AVENTIS
  Company Number: US-SA-2025SA083491

PATIENT
  Age: 17 Year
  Sex: Female

DRUGS (1)
  1. DUPIXENT [Suspect]
     Active Substance: DUPILUMAB
     Indication: Eosinophilic oesophagitis
     Dosage: 300 MG, QW
     Route: 058

REACTIONS (7)
  - Choking [Recovered/Resolved]
  - Rebound effect [Recovered/Resolved]
  - Cough [Recovered/Resolved]
  - Rebound effect [Recovered/Resolved]
  - Dermatitis [Unknown]
  - Skin warm [Not Recovered/Not Resolved]
  - Erythema [Not Recovered/Not Resolved]
